FAERS Safety Report 6336265-9 (Version None)
Quarter: 2009Q3

REPORT INFORMATION
  Report Type: 
  Country: None (occurrence: None)
  Receive Date: 20090901
  Receipt Date: 20090826
  Transmission Date: 20100115
  Serious: Yes (Death)
  Sender: FDA-Public Use
  Company Number: PHHY2009CA36608

PATIENT
  Sex: Female

DRUGS (1)
  1. SANDOSTATIN LAR [Suspect]
     Indication: OVARIAN CANCER METASTATIC
     Dosage: 20 MG, QMO
     Route: 030
     Dates: start: 20090114, end: 20090804

REACTIONS (1)
  - DEATH [None]
